FAERS Safety Report 8464154 (Version 2)
Quarter: 2014Q4

REPORT INFORMATION
  Report Type: Spontaneous
  Country: FR (occurrence: FR)
  Receive Date: 20120316
  Receipt Date: 20141222
  Transmission Date: 20150529
  Serious: Yes (Hospitalization, Other)
  Sender: FDA-Public Use
  Company Number: FR-BRISTOL-MYERS SQUIBB COMPANY-16443723

PATIENT
  Age: 59 Year
  Sex: Male

DRUGS (2)
  1. LYSODREN [Suspect]
     Active Substance: MITOTANE
     Indication: ADRENOCORTICAL CARCINOMA
     Dosage: UNK
     Route: 048
     Dates: start: 201009, end: 20111111
  2. ADIXONE [Suspect]
     Active Substance: FLUDROCORTISONE ACETATE
     Indication: ADRENOCORTICAL CARCINOMA
     Dosage: 75 ?G, QD
     Route: 048
     Dates: start: 201009

REACTIONS (12)
  - Systemic inflammatory response syndrome [None]
  - Rectal haemorrhage [None]
  - Shock haemorrhagic [Unknown]
  - Neutrophilic dermatosis [None]
  - Adrenal insufficiency [Unknown]
  - Post procedural diarrhoea [None]
  - Colitis ulcerative [None]
  - Vomiting [None]
  - Colitis [Unknown]
  - Septic shock [Unknown]
  - Thrombosis [None]
  - General physical health deterioration [None]

NARRATIVE: CASE EVENT DATE: 20111208
